FAERS Safety Report 10425679 (Version 1)
Quarter: 2014Q3

REPORT INFORMATION
  Report Type: Spontaneous
  Country: FI (occurrence: FI)
  Receive Date: 20140903
  Receipt Date: 20140903
  Transmission Date: 20150326
  Serious: Yes (Life-Threatening, Hospitalization, Other)
  Sender: FDA-Public Use
  Company Number: FI-ROCHE-1455283

PATIENT
  Age: 54 Year
  Sex: Female

DRUGS (4)
  1. OXALIPLATIN HOSPIRA [Concomitant]
     Active Substance: OXALIPLATIN
     Indication: ADJUVANT THERAPY
     Route: 042
     Dates: start: 20140526, end: 20140704
  2. XELODA [Suspect]
     Active Substance: CAPECITABINE
     Indication: GASTROINTESTINAL CARCINOMA
  3. XELODA [Suspect]
     Active Substance: CAPECITABINE
     Indication: ADJUVANT THERAPY
     Dosage: 2 TABLETS IN THE MORNING (1000 MG) AND 3 TABLETS IN THE EVENING (1500 MG) TOTAL DAILY DOSE?2500 MG F
     Route: 048
     Dates: start: 20140526, end: 20140718
  4. OXALIPLATIN HOSPIRA [Concomitant]
     Active Substance: OXALIPLATIN
     Indication: GASTROINTESTINAL CARCINOMA

REACTIONS (8)
  - Ventricular dyskinesia [Unknown]
  - Electrocardiogram T wave inversion [Recovering/Resolving]
  - Chest discomfort [Recovered/Resolved]
  - Ventricular hypokinesia [Unknown]
  - Deep vein thrombosis [Unknown]
  - Sense of oppression [Recovered/Resolved]
  - Palpitations [Recovered/Resolved]
  - Mitral valve incompetence [Unknown]

NARRATIVE: CASE EVENT DATE: 20140730
